FAERS Safety Report 25685272 (Version 1)
Quarter: 2025Q3

REPORT INFORMATION
  Report Type: Spontaneous
  Country: GB (occurrence: None)
  Receive Date: 20250814
  Receipt Date: 20250814
  Transmission Date: 20251021
  Serious: Yes (Hospitalization)
  Sender: FDA-CTU
  Company Number: None

PATIENT
  Age: 20 Year
  Sex: Female
  Weight: 82 kg

DRUGS (1)
  1. MOUNJARO [Suspect]
     Active Substance: TIRZEPATIDE
     Indication: Weight decreased
     Dates: start: 20250717, end: 20250809

REACTIONS (4)
  - Pain in extremity [None]
  - Movement disorder [None]
  - Deep vein thrombosis [None]
  - Gait inability [None]

NARRATIVE: CASE EVENT DATE: 20250809
